FAERS Safety Report 14060625 (Version 1)
Quarter: 2017Q4

REPORT INFORMATION
  Report Type: Spontaneous
  Country: BR (occurrence: BR)
  Receive Date: 20171007
  Receipt Date: 20171007
  Transmission Date: 20180321
  Serious: Yes (Other)
  Sender: FDA-Public Use
  Company Number: BR-ROCHE-2001253

PATIENT
  Age: 48 Year
  Sex: Male

DRUGS (1)
  1. XELODA [Suspect]
     Active Substance: CAPECITABINE
     Indication: INTESTINAL ADENOCARCINOMA
     Route: 065
     Dates: start: 2014

REACTIONS (3)
  - Infarction [Unknown]
  - Metastases to adrenals [Unknown]
  - Metastases to lung [Unknown]

NARRATIVE: CASE EVENT DATE: 201405
